FAERS Safety Report 15011860 (Version 1)
Quarter: 2018Q2

REPORT INFORMATION
  Report Type: Spontaneous
  Country: US (occurrence: US)
  Receive Date: 20180529
  Receipt Date: 20180529
  Transmission Date: 20180711
  Serious: Yes (Death, Other)
  Sender: FDA-Public Use
  Company Number: None

PATIENT
  Age: 65 Year
  Sex: Female
  Weight: 76.6 kg

DRUGS (4)
  1. METHOTREXATE. [Suspect]
     Active Substance: METHOTREXATE
     Indication: RHEUMATOID ARTHRITIS
     Route: 048
     Dates: start: 20161012, end: 20180518
  2. NAPROXEN 500MG BID [Concomitant]
     Dates: start: 20180208, end: 20180518
  3. LEFLUNOMIDE. [Suspect]
     Active Substance: LEFLUNOMIDE
     Indication: RHEUMATOID ARTHRITIS
     Route: 048
     Dates: start: 20180308, end: 20180518
  4. CEPHALEXIN 500MG BID [Concomitant]
     Dates: start: 20180430, end: 20180507

REACTIONS (13)
  - Chest discomfort [None]
  - Blood creatinine increased [None]
  - Liver function test increased [None]
  - Anaemia [None]
  - Fatigue [None]
  - Dyspnoea [None]
  - Bone marrow failure [None]
  - Stomatitis [None]
  - Swelling face [None]
  - Burning sensation [None]
  - Oropharyngeal pain [None]
  - Hepatic failure [None]
  - Confusional state [None]

NARRATIVE: CASE EVENT DATE: 20180430
